FAERS Safety Report 7098629-8 (Version None)
Quarter: 2010Q4

REPORT INFORMATION
  Report Type: 
  Country: None (occurrence: None)
  Receive Date: 20101104
  Receipt Date: 20101019
  Transmission Date: 20110411
  Serious: Yes (Hospitalization)
  Sender: FDA-Public Use
  Company Number: FKO201000478

PATIENT
  Age: 65 Year
  Sex: Female

DRUGS (2)
  1. METHOTREXATE [Suspect]
     Indication: RHEUMATOID ARTHRITIS
     Dosage: 1.4286 MG (10 MG,1 IN 1 WK)
  2. PREDNISOLONE [Concomitant]

REACTIONS (5)
  - ANAEMIA [None]
  - DISSEMINATED TUBERCULOSIS [None]
  - LEUKOCYTOSIS [None]
  - NECROTISING FASCIITIS [None]
  - RASH ERYTHEMATOUS [None]
